FAERS Safety Report 7303317-6 (Version None)
Quarter: 2011Q1

REPORT INFORMATION
  Report Type: 
  Country: None (occurrence: None)
  Receive Date: 20110221
  Receipt Date: 20110209
  Transmission Date: 20110831
  Serious: Yes (Hospitalization, Other)
  Sender: FDA-Public Use
  Company Number: US-TYCO HEALTHCARE/MALLINCKRODT-T201002054

PATIENT
  Sex: Male
  Weight: 77.098 kg

DRUGS (16)
  1. ZOCOR [Concomitant]
  2. MULTIHANCE [Suspect]
     Indication: NUCLEAR MAGNETIC RESONANCE IMAGING
     Dosage: 12 ML, SINGLE
     Dates: start: 20071030, end: 20071030
  3. ASA [Concomitant]
  4. PLAVIX [Concomitant]
  5. SYNTHROID [Concomitant]
  6. PREDNISONE [Concomitant]
  7. MAGNEVIST [Suspect]
     Indication: NUCLEAR MAGNETIC RESONANCE IMAGING
     Dosage: 20 ML, SINGLE
     Dates: start: 20060206, end: 20060206
  8. CLONIDINE [Concomitant]
  9. OMNISCAN [Suspect]
     Indication: MAGNETIC RESONANCE CHOLANGIOPANCREATOGRAPHY
  10. MULTIHANCE [Suspect]
     Indication: ANGIOGRAM
  11. METOPROLOL [Concomitant]
  12. NEXIUM [Concomitant]
  13. OPTIMARK [Suspect]
     Indication: NUCLEAR MAGNETIC RESONANCE IMAGING
     Dosage: 30 ML, SINGLE
     Dates: start: 20060525, end: 20060525
  14. OPTIMARK [Suspect]
     Indication: ANGIOGRAM
  15. OMNISCAN [Suspect]
     Indication: NUCLEAR MAGNETIC RESONANCE IMAGING
     Dosage: 20 ML, SINGLE
     Dates: start: 20060112, end: 20060112
  16. RENAGEL                            /01459901/ [Concomitant]

REACTIONS (12)
  - CATHETER SITE INFECTION [None]
  - STENT-GRAFT ENDOLEAK [None]
  - COLITIS [None]
  - SEROMA [None]
  - POST PROCEDURAL HAEMATOMA [None]
  - URINARY TRACT INFECTION [None]
  - POSTOPERATIVE FEVER [None]
  - HAIR DISORDER [None]
  - HYPERTONIA [None]
  - PARAESTHESIA [None]
  - NEPHROGENIC SYSTEMIC FIBROSIS [None]
  - ANEURYSM [None]
